FAERS Safety Report 4316837-3 (Version None)
Quarter: 2004Q1

REPORT INFORMATION
  Report Type: 
  Country: None (occurrence: None)
  Receive Date: 20040309
  Receipt Date: 20031203
  Transmission Date: 20041129
  Serious: Yes (Hospitalization)
  Sender: FDA-Public Use
  Company Number: A03200302892

PATIENT
  Age: 66 Year
  Sex: Female
  Weight: 45.8133 kg

DRUGS (2)
  1. ELOXATIN [Suspect]
     Indication: PANCREATIC CARCINOMA
     Dosage: 51.8 MG OTHER - INTRAVENOUS NOS
     Route: 042
     Dates: start: 20031125, end: 20031125
  2. DOCETAXEL [Suspect]
     Indication: PANCREATIC CARCINOMA
     Dosage: 54MG OVER ONE HOUR
     Dates: start: 20031128

REACTIONS (2)
  - PNEUMONIA [None]
  - PYREXIA [None]
